FAERS Safety Report 18566583 (Version 1)
Quarter: 2020Q4

REPORT INFORMATION
  Report Type: Spontaneous
  Country: DE (occurrence: DE)
  Receive Date: 20201201
  Receipt Date: 20201201
  Transmission Date: 20210114
  Serious: Yes (Hospitalization, Other)
  Sender: FDA-Public Use
  Company Number: DE-TEVA-2020-DE-1851660

PATIENT
  Age: 38 Year
  Sex: Female

DRUGS (4)
  1. COTRIMOXAZOL [Suspect]
     Active Substance: SULFAMETHOXAZOLE\TRIMETHOPRIM
     Indication: URINARY TRACT INFECTION
     Dosage: UNIT DOSE : 960 MG
     Route: 048
     Dates: start: 20201020, end: 20201022
  2. PANTOZOL [Concomitant]
     Active Substance: PANTOPRAZOLE SODIUM
     Indication: GASTROINTESTINAL HAEMORRHAGE
     Dosage: LONG-TERM MEDICATION, UNIT DOSE : 40 MG
     Route: 048
     Dates: start: 202009
  3. CARVEDILOL. [Concomitant]
     Active Substance: CARVEDILOL
     Indication: VARICES OESOPHAGEAL
     Dosage: LONG-TERM MEDICATION, UNIT DOSE : 6.25 MG
     Dates: start: 202009
  4. VITAMIN B1 [Concomitant]
     Active Substance: THIAMINE HYDROCHLORIDE
     Indication: ALCOHOL ABUSE
     Dosage: LONG-TERM MEDICATION, UNIT DOSE : 200 MG

REACTIONS (5)
  - Pancytopenia [Recovering/Resolving]
  - Splenomegaly [Recovering/Resolving]
  - Coombs negative haemolytic anaemia [Recovering/Resolving]
  - Disease progression [Recovering/Resolving]
  - Bicytopenia [Recovering/Resolving]

NARRATIVE: CASE EVENT DATE: 20201022
